FAERS Safety Report 7337138-5 (Version None)
Quarter: 2011Q1

REPORT INFORMATION
  Report Type: 
  Country: None (occurrence: None)
  Receive Date: 20110308
  Receipt Date: 20110222
  Transmission Date: 20110831
  Serious: Yes (Other)
  Sender: FDA-Public Use
  Company Number: US-RANBAXY-2010RR-40735

PATIENT
  Sex: Male

DRUGS (3)
  1. LEVAQUIN [Suspect]
     Indication: URINARY TRACT INFECTION
     Dosage: UNK
     Route: 048
     Dates: start: 20060928, end: 20061018
  2. CIPROFLOXACIN [Suspect]
     Indication: PRODUCT USED FOR UNKNOWN INDICATION
  3. LEVAQUIN [Suspect]
     Indication: TESTICULAR SWELLING

REACTIONS (5)
  - ADVERSE EVENT [None]
  - PAIN IN EXTREMITY [None]
  - TENDONITIS [None]
  - TENDON RUPTURE [None]
  - PLANTAR FASCIITIS [None]
